FAERS Safety Report 13910677 (Version 1)
Quarter: 2017Q3

REPORT INFORMATION
  Report Type: Not Available
  Country: None (occurrence: US)
  Receive Date: 20170828
  Receipt Date: 20170828
  Transmission Date: 20171127
  Serious: No
  Sender: FDA-Public Use
  Company Number: US-AKORN-59709

PATIENT
  Age: 11 Year
  Sex: Male

DRUGS (1)
  1. AMANTADINE HYDROCHLORIDE ORAL SOLUTION, USP [Suspect]
     Active Substance: AMANTADINE HYDROCHLORIDE

REACTIONS (5)
  - Erythema [Recovered/Resolved]
  - Eye pruritus [Recovered/Resolved]
  - Dysphagia [Recovered/Resolved]
  - Skin fissures [Recovered/Resolved]
  - Swelling face [Recovered/Resolved]
